FAERS Safety Report 9017461 (Version 2)
Quarter: 2013Q1

REPORT INFORMATION
  Report Type: Spontaneous
  Country: GB (occurrence: GB)
  Receive Date: 20130117
  Receipt Date: 20130204
  Transmission Date: 20140127
  Serious: Yes (Hospitalization, Other)
  Sender: FDA-Public Use
  Company Number: GB-TEVA-380321ISR

PATIENT
  Age: 50 Year
  Sex: Female

DRUGS (7)
  1. VALPROIC ACID [Suspect]
     Indication: SCHIZOAFFECTIVE DISORDER
     Dosage: 1500 MG
     Route: 048
  2. CLOZARIL [Suspect]
     Indication: SCHIZOPHRENIA
     Route: 048
     Dates: start: 20121011
  3. CLOZARIL [Suspect]
     Dosage: 250 MG
     Route: 048
     Dates: start: 20121013
  4. AMISULPRIDE [Concomitant]
     Indication: PSYCHOTIC DISORDER
     Dosage: 300 MG
     Route: 048
  5. CLONAZEPAM [Concomitant]
     Indication: AGITATION
     Dosage: 2.5 MG
     Route: 048
  6. PROPRANOLOL [Concomitant]
     Dosage: 40 MG
     Route: 048
  7. BUMETANIDE [Concomitant]
     Dosage: 1 MG
     Route: 048

REACTIONS (2)
  - Haemoglobin decreased [Not Recovered/Not Resolved]
  - Neutropenia [Recovering/Resolving]
